FAERS Safety Report 21949619 (Version 1)
Quarter: 2023Q1

REPORT INFORMATION
  Report Type: Spontaneous
  Country: US (occurrence: US)
  Receive Date: 20230203
  Receipt Date: 20230203
  Transmission Date: 20230418
  Serious: No
  Sender: FDA-Public Use
  Company Number: US-GSK-US2023011498

PATIENT
  Age: 67 Year
  Sex: Male

DRUGS (1)
  1. NUCALA [Suspect]
     Active Substance: MEPOLIZUMAB
     Indication: Myalgia
     Dosage: 300 MG, Z, EVERY 4 WEEK

REACTIONS (6)
  - Eosinophilia [Unknown]
  - Arthralgia [Unknown]
  - Unevaluable event [Unknown]
  - Product dose omission issue [Unknown]
  - Drug ineffective for unapproved indication [Unknown]
  - Product use in unapproved indication [Unknown]

NARRATIVE: CASE EVENT DATE: 20230115
